FAERS Safety Report 8080533-X (Version None)
Quarter: 2012Q1

REPORT INFORMATION
  Report Type: 
  Country: None (occurrence: None)
  Receive Date: 20120130
  Receipt Date: 20120117
  Transmission Date: 20120608
  Serious: Yes (Hospitalization, Other)
  Sender: FDA-Public Use
  Company Number: AU-UCBSA-033420

PATIENT
  Age: 15 Year
  Sex: Male

DRUGS (7)
  1. CEPHALEXIN [Suspect]
     Route: 042
     Dates: start: 20110513, end: 20110513
  2. KEPPRA [Suspect]
     Indication: EPILEPSY
     Route: 042
     Dates: start: 20110513, end: 20110513
  3. KEPPRA [Suspect]
     Route: 042
     Dates: start: 20110514
  4. KEPPRA [Suspect]
     Indication: STATUS EPILEPTICUS
     Route: 042
     Dates: start: 20110513, end: 20110513
  5. PHENYTOIN SODIUM [Suspect]
     Dosage: 1000 MG
     Route: 042
     Dates: start: 20110513, end: 20110513
  6. KEPPRA [Suspect]
     Route: 042
     Dates: start: 20110514
  7. ACYCLOVIR [Suspect]
     Route: 042
     Dates: end: 20110101

REACTIONS (1)
  - RHABDOMYOLYSIS [None]
